FAERS Safety Report 16731153 (Version 1)
Quarter: 2019Q4

REPORT INFORMATION
  Report Type: Spontaneous
  Country: US (occurrence: US)
  Receive Date: 20190822
  Receipt Date: 20190822
  Transmission Date: 20200122
  Serious: Yes (Hospitalization)
  Sender: FDA-Public Use
  Company Number: None

PATIENT
  Sex: Female

DRUGS (4)
  1. VENLAFAXINE [Concomitant]
     Active Substance: VENLAFAXINE HYDROCHLORIDE
  2. TRUVADA [Suspect]
     Active Substance: EMTRICITABINE\TENOFOVIR DISOPROXIL FUMARATE
     Indication: PRODUCT USED FOR UNKNOWN INDICATION
     Route: 048
     Dates: start: 20190626
  3. ATORVASTATIN, TRAMADOL, METRONIDAZOL, ONDANSETRON [Concomitant]
  4. PREDNISONE, PANTOPRAZOLE, ROPINIROLE, CIPROFLOXACIN [Concomitant]

REACTIONS (2)
  - Therapy cessation [None]
  - Hepatic enzyme increased [None]
